FAERS Safety Report 11172589 (Version 1)
Quarter: 2015Q2

REPORT INFORMATION
  Report Type: Spontaneous
  Country: US (occurrence: US)
  Receive Date: 20150608
  Receipt Date: 20150608
  Transmission Date: 20150821
  Serious: No
  Sender: FDA-Public Use
  Company Number: US-AMGEN-USASP2015045136

PATIENT
  Age: 21 Year
  Sex: Male

DRUGS (2)
  1. PROCRIT [Suspect]
     Active Substance: ERYTHROPOIETIN
     Indication: PRODUCT USED FOR UNKNOWN INDICATION
     Dosage: UNK
     Route: 065
  2. ARANESP [Suspect]
     Active Substance: DARBEPOETIN ALFA
     Indication: RENAL DISORDER
     Dosage: UNK UNK, EVERY 2 WEEKS
     Route: 065

REACTIONS (4)
  - Fatigue [Unknown]
  - Renal disorder [Unknown]
  - Incorrect drug administration duration [Unknown]
  - Haemoglobin abnormal [Unknown]
